FAERS Safety Report 21851982 (Version 1)
Quarter: 2023Q1

REPORT INFORMATION
  Report Type: Report from Study
  Country: US (occurrence: US)
  Receive Date: 20230112
  Receipt Date: 20230112
  Transmission Date: 20230418
  Serious: No
  Sender: FDA-Public Use
  Company Number: US-ABBVIE-4234316

PATIENT
  Sex: Female
  Weight: 94.347 kg

DRUGS (2)
  1. HUMIRA [Suspect]
     Active Substance: ADALIMUMAB
     Indication: Hidradenitis
     Dosage: FORM STRENGTH:160 MG
     Route: 058
     Dates: start: 20221024, end: 20221024
  2. HUMIRA [Suspect]
     Active Substance: ADALIMUMAB
     Dosage: FORM STRENGTH:40 MG
     Route: 058
     Dates: start: 20221121

REACTIONS (3)
  - Wrong technique in product usage process [Not Recovered/Not Resolved]
  - Product administration error [Not Recovered/Not Resolved]
  - Product physical issue [Not Recovered/Not Resolved]
